FAERS Safety Report 11049287 (Version 2)
Quarter: 2015Q3

REPORT INFORMATION
  Report Type: Spontaneous
  Country: US (occurrence: US)
  Receive Date: 20150420
  Receipt Date: 20150716
  Transmission Date: 20151125
  Serious: Yes (Other)
  Sender: FDA-Public Use
  Company Number: US-TEVA-556519USA

PATIENT
  Age: 20 Year
  Sex: Female

DRUGS (2)
  1. ACCUTANE [Concomitant]
     Active Substance: ISOTRETINOIN
     Indication: ACNE
  2. PARAGARD T 380A [Suspect]
     Active Substance: COPPER
     Indication: CONTRACEPTION
     Route: 015
     Dates: start: 201402, end: 20150403

REACTIONS (4)
  - Device expulsion [Recovered/Resolved]
  - Metrorrhagia [Unknown]
  - Device dislocation [Recovered/Resolved with Sequelae]
  - Amenorrhoea [Recovered/Resolved]

NARRATIVE: CASE EVENT DATE: 201402
